FAERS Safety Report 25252095 (Version 1)
Quarter: 2025Q2

REPORT INFORMATION
  Report Type: Spontaneous
  Country: FR (occurrence: FR)
  Receive Date: 20250429
  Receipt Date: 20250429
  Transmission Date: 20250716
  Serious: Yes (Hospitalization, Other)
  Sender: KYOWA
  Company Number: FR-KYOWA KIRIN , INC.-2025KK007423

PATIENT

DRUGS (2)
  1. POTELIGEO [Suspect]
     Active Substance: MOGAMULIZUMAB-KPKC
     Indication: Cutaneous T-cell lymphoma
     Dosage: 1 MG/KG, 1X/WEEK
     Route: 042
     Dates: start: 20241211, end: 20241231
  2. POTELIGEO [Suspect]
     Active Substance: MOGAMULIZUMAB-KPKC
     Indication: Cutaneous T-cell lymphoma
     Dosage: 1 MG/KG, 1X/2 WEEKS
     Route: 042
     Dates: start: 20250106, end: 20250218

REACTIONS (3)
  - Skin necrosis [Recovering/Resolving]
  - Tumour necrosis [Unknown]
  - Tumour ulceration [Unknown]

NARRATIVE: CASE EVENT DATE: 20241213
